FAERS Safety Report 6585991-5 (Version None)
Quarter: 2010Q1

REPORT INFORMATION
  Report Type: 
  Country: None (occurrence: None)
  Receive Date: 20100216
  Receipt Date: 20100216
  Transmission Date: 20100710
  Serious: Yes (Disabling)
  Sender: FDA-Public Use
  Company Number: None

PATIENT
  Age: 70 Year
  Sex: Female
  Weight: 58.0604 kg

DRUGS (2)
  1. FOSAMAX [Suspect]
     Indication: OSTEOPENIA
     Dosage: ONE PER WEEK STRENGTH/SAME DOSAGE FOR EVERY ONE
  2. BONIVA [Suspect]
     Dosage: ONE PER MONTH STRENGTH/SAME DOSAAGE FOR EVERY ONE

REACTIONS (1)
  - OESOPHAGEAL DISORDER [None]
